FAERS Safety Report 9787623 (Version 2)
Quarter: 2014Q1

REPORT INFORMATION
  Report Type: Spontaneous
  Country: IT (occurrence: IT)
  Receive Date: 20131230
  Receipt Date: 20140102
  Transmission Date: 20141002
  Serious: Yes (Other)
  Sender: FDA-Public Use
  Company Number: IT-RANBAXY-2013RR-76444

PATIENT
  Age: 54 Year
  Sex: Male

DRUGS (5)
  1. FINASTERIDE [Suspect]
     Indication: BENIGN PROSTATIC HYPERPLASIA
     Dosage: 5 MG DAILY
     Route: 048
     Dates: start: 20131116, end: 20131119
  2. TACHIDOL [Interacting]
     Indication: BACK PAIN
     Dosage: 1 DOSAGE UNIT WHEN WAS NECESSARY
     Route: 048
     Dates: start: 20131115, end: 20131118
  3. UROREC [Interacting]
     Indication: BENIGN PROSTATIC HYPERPLASIA
     Dosage: 8 MG DAILY
     Route: 048
     Dates: start: 20131116, end: 20131119
  4. MODITEN [Concomitant]
     Indication: PRODUCT USED FOR UNKNOWN INDICATION
     Dosage: 25 MG, UNK
     Route: 030
     Dates: start: 20110101, end: 20131119
  5. EN [Concomitant]
     Indication: ANXIETY
     Dosage: UNK
     Route: 048
     Dates: start: 20040101, end: 20131119

REACTIONS (2)
  - Fluid retention [Not Recovered/Not Resolved]
  - Renal pain [Not Recovered/Not Resolved]
